FAERS Safety Report 9399841 (Version 2)
Quarter: 2013Q3

REPORT INFORMATION
  Report Type: Spontaneous
  Country: DE (occurrence: DE)
  Receive Date: 20130715
  Receipt Date: 20130718
  Transmission Date: 20140515
  Serious: Yes (Other)
  Sender: FDA-Public Use
  Company Number: PHHY2013DE073846

PATIENT
  Sex: Male

DRUGS (3)
  1. ZOMETA [Suspect]
     Dosage: UNK UKN, UNK
     Route: 042
  2. BICALUTAMIDE [Concomitant]
     Dosage: UNK UKN, UNK
  3. ZOLADEX [Concomitant]
     Dosage: UNK UKN, UNK

REACTIONS (2)
  - Endocarditis staphylococcal [Unknown]
  - Iatrogenic infection [Unknown]
